FAERS Safety Report 10464431 (Version 6)
Quarter: 2015Q3

REPORT INFORMATION
  Report Type: Spontaneous
  Country: US (occurrence: US)
  Receive Date: 20140919
  Receipt Date: 20150710
  Transmission Date: 20151125
  Serious: Yes (Hospitalization)
  Sender: FDA-Public Use
  Company Number: US-009507513-1409USA008061

PATIENT
  Sex: Male
  Weight: 92.97 kg

DRUGS (1)
  1. PROPECIA [Suspect]
     Active Substance: FINASTERIDE
     Indication: ANDROGENETIC ALOPECIA
     Dosage: 1 MG, QD
     Route: 048
     Dates: start: 20050715, end: 20100605

REACTIONS (17)
  - Psychiatric symptom [Not Recovered/Not Resolved]
  - Blood testosterone decreased [Unknown]
  - Insomnia [Not Recovered/Not Resolved]
  - Self esteem decreased [Not Recovered/Not Resolved]
  - Depression [Not Recovered/Not Resolved]
  - Sexual dysfunction [Not Recovered/Not Resolved]
  - Blood cholesterol increased [Unknown]
  - Androgen deficiency [Unknown]
  - Erectile dysfunction [Not Recovered/Not Resolved]
  - Atrial fibrillation [Unknown]
  - Gout [Unknown]
  - Anxiety [Not Recovered/Not Resolved]
  - Emotional disorder [Not Recovered/Not Resolved]
  - Intervertebral disc protrusion [Not Recovered/Not Resolved]
  - Conjunctivitis allergic [Unknown]
  - Fatigue [Unknown]
  - Libido decreased [Unknown]

NARRATIVE: CASE EVENT DATE: 20070712
